FAERS Safety Report 20227663 (Version 1)
Quarter: 2021Q4

REPORT INFORMATION
  Report Type: Spontaneous
  Country: DE (occurrence: DE)
  Receive Date: 20211224
  Receipt Date: 20211224
  Transmission Date: 20220303
  Serious: Yes (Hospitalization)
  Sender: FDA-Public Use
  Company Number: DE-ADRED-07618-01

PATIENT
  Age: 72 Year
  Sex: Male
  Weight: 121 kg

DRUGS (14)
  1. METOPROLOL [Suspect]
     Active Substance: METOPROLOL
     Indication: Product used for unknown indication
     Route: 048
  2. FUROSEMIDE [Suspect]
     Active Substance: FUROSEMIDE
     Indication: Product used for unknown indication
     Route: 048
  3. XIPAMIDE [Suspect]
     Active Substance: XIPAMIDE
     Indication: Product used for unknown indication
     Dosage: 0.25-0-0-0
     Route: 048
  4. AMIODARONE [Suspect]
     Active Substance: AMIODARONE
     Indication: Product used for unknown indication
     Route: 048
  5. levemir 1000I.E. 100I.E./ml [Concomitant]
     Indication: Product used for unknown indication
     Route: 058
  6. humalog 1000E. 100E./ml [Concomitant]
     Indication: Product used for unknown indication
     Dosage: NACH SCHEMA
     Route: 058
  7. xarelto15mg [Concomitant]
     Indication: Product used for unknown indication
     Route: 048
  8. pantoBEM 20mg [Concomitant]
     Indication: Product used for unknown indication
     Dosage: 20 MG, 1-0-0-0
     Route: 048
  9. MAGNESIUM [Concomitant]
     Active Substance: MAGNESIUM
     Indication: Product used for unknown indication
     Route: 048
  10. entresto 97mg/103mg [Concomitant]
     Indication: Product used for unknown indication
     Dosage: 97|103 MG, 1-0-1-0
     Route: 048
  11. ATORVASTATIN [Concomitant]
     Active Substance: ATORVASTATIN
     Indication: Product used for unknown indication
     Route: 048
  12. POTASSIUM CHLORIDE [Concomitant]
     Active Substance: POTASSIUM CHLORIDE
     Indication: Product used for unknown indication
     Dosage: 2-2-2-2
     Route: 048
  13. semaglutid Novo Nordisk [Concomitant]
     Indication: Product used for unknown indication
     Dosage: 1 IE, MONTAGS
     Route: 058
  14. EZETIMIBE [Concomitant]
     Active Substance: EZETIMIBE
     Indication: Product used for unknown indication
     Route: 048

REACTIONS (6)
  - Malaise [Unknown]
  - Hypotension [Unknown]
  - Cold sweat [Unknown]
  - Dizziness [Unknown]
  - Tachycardia [Unknown]
  - Dyspnoea exertional [Unknown]
